FAERS Safety Report 5867462-4 (Version None)
Quarter: 2008Q3

REPORT INFORMATION
  Report Type: 
  Country: None (occurrence: None)
  Receive Date: 20080902
  Receipt Date: 20080902
  Transmission Date: 20090109
  Serious: Yes (Hospitalization)
  Sender: FDA-Public Use
  Company Number: PHEH1996US09645

PATIENT
  Sex: Female
  Weight: 76.8 kg

DRUGS (7)
  1. SANDIMMUNE [Suspect]
     Route: 048
     Dates: start: 19950310
  2. PROCARDIA [Concomitant]
     Dosage: UNSPECIFIED
     Route: 065
  3. AMITRIPTYLINE HCL [Concomitant]
     Dosage: UNSPECIFIED
     Route: 065
  4. PREDNISONE TAB [Concomitant]
     Dosage: UNSPECIFIED
     Route: 065
  5. COLACE [Concomitant]
     Dosage: UNSPECIFIED
     Route: 065
  6. MYCELEX [Concomitant]
     Dosage: UNSPECIFIED
     Route: 065
  7. PEPCID [Concomitant]
     Dosage: UNSPECIFIED
     Route: 065

REACTIONS (2)
  - GASTROINTESTINAL HAEMORRHAGE [None]
  - VASCULAR MALFORMATION PERIPHERAL [None]
